FAERS Safety Report 6283424-X (Version None)
Quarter: 2009Q4

REPORT INFORMATION
  Report Type: 
  Country: None (occurrence: None)
  Receive Date: 20090721
  Receipt Date: 20090721
  Transmission Date: 20100525
  Serious: No
  Sender: FDA-Public Use
  Company Number: None

PATIENT
  Age: 82 Year
  Sex: Male

DRUGS (5)
  1. SIMVASTATIN [Suspect]
     Dosage: 20 MG ONCE DAILY
     Dates: start: 20060711, end: 20061130
  2. METFORMIN [Concomitant]
  3. AMBIEN CR [Concomitant]
  4. WELLBUTRIN [Concomitant]
  5. LEXAPRO [Concomitant]

REACTIONS (3)
  - DEPRESSION [None]
  - HEPATITIS CHOLESTATIC [None]
  - LIVER INJURY [None]
